FAERS Safety Report 7507107-0 (Version None)
Quarter: 2011Q2

REPORT INFORMATION
  Report Type: 
  Country: None (occurrence: None)
  Receive Date: 20110526
  Receipt Date: 20110517
  Transmission Date: 20111010
  Serious: Yes (Hospitalization, Other)
  Sender: FDA-Public Use
  Company Number: US-ELI_LILLY_AND_COMPANY-US201105005657

PATIENT
  Sex: Male

DRUGS (8)
  1. HUMALOG [Suspect]
     Dosage: UNK, TID
     Dates: start: 19740101, end: 20110516
  2. HUMALOG [Suspect]
     Indication: DIABETES MELLITUS
     Dosage: UNK UNK, TID
     Dates: start: 19740101
  3. HUMULIN R [Suspect]
     Dosage: 4 U, QD
     Dates: start: 19740101
  4. HUMULIN N [Suspect]
     Dosage: 15 U, OTHER
     Dates: start: 19740101
  5. HUMALOG [Suspect]
     Dosage: UNK UNK, TID
  6. HUMULIN R [Suspect]
     Indication: DIABETES MELLITUS
     Dosage: 4 U, QD
     Dates: start: 19740101
  7. HUMULIN N [Suspect]
     Indication: DIABETES MELLITUS
     Dosage: 15 U, OTHER
     Dates: start: 19740101
  8. HUMALOG [Suspect]
     Dosage: UNK, TID

REACTIONS (9)
  - DRUG INEFFECTIVE [None]
  - VISION BLURRED [None]
  - CORONARY ARTERY BYPASS [None]
  - RENAL IMPAIRMENT [None]
  - CATARACT [None]
  - BLOOD GLUCOSE DECREASED [None]
  - CARDIAC FAILURE [None]
  - VISUAL ACUITY REDUCED [None]
  - BLOOD GLUCOSE INCREASED [None]
